FAERS Safety Report 15037286 (Version 11)
Quarter: 2019Q3

REPORT INFORMATION
  Report Type: Report from Study
  Country: GB (occurrence: GB)
  Receive Date: 20180620
  Receipt Date: 20190802
  Transmission Date: 20191004
  Serious: Yes (Other)
  Sender: FDA-Public Use
  Company Number: GB-UCBSA-2018026328

PATIENT
  Sex: Female

DRUGS (2)
  1. AMITRIPTYLINE [Concomitant]
     Active Substance: AMITRIPTYLINE
     Indication: PRODUCT USED FOR UNKNOWN INDICATION
     Dosage: UNK
  2. CERTOLIZUMAB PEGOL [Suspect]
     Active Substance: CERTOLIZUMAB PEGOL
     Indication: RHEUMATOID ARTHRITIS
     Dosage: 200 MG, EV 2 WEEKS(QOW)
     Route: 058
     Dates: start: 20170822, end: 20181219

REACTIONS (15)
  - Enteritis infectious [Unknown]
  - Adverse event [Unknown]
  - Product dose omission [Unknown]
  - Chronic obstructive pulmonary disease [Unknown]
  - Limb injury [Unknown]
  - Rectal haemorrhage [Unknown]
  - Infection [Unknown]
  - Gingival bleeding [Unknown]
  - Nasopharyngitis [Unknown]
  - Dizziness [Unknown]
  - Mouth haemorrhage [Unknown]
  - Abscess oral [Not Recovered/Not Resolved]
  - Pain [Unknown]
  - Fall [Unknown]
  - Tooth fracture [Unknown]

NARRATIVE: CASE EVENT DATE: 2018
